FAERS Safety Report 6043251-5 (Version None)
Quarter: 2009Q1

REPORT INFORMATION
  Report Type: 
  Country: None (occurrence: None)
  Receive Date: 20090119
  Receipt Date: 20080811
  Transmission Date: 20090719
  Serious: Yes (Hospitalization)
  Sender: FDA-Public Use
  Company Number: DK-ABBOTT-09P-044-0498018-00

PATIENT
  Sex: Male

DRUGS (10)
  1. ABBOTICIN NOVUM TABLETS [Suspect]
     Indication: PNEUMONIA
     Route: 048
     Dates: start: 20080701, end: 20080710
  2. METHOTREXATE [Concomitant]
     Indication: RHEUMATOID ARTHRITIS
  3. PREDNISOLONE ^DAK^ [Concomitant]
     Indication: DRUG USE FOR UNKNOWN INDICATION
  4. FOLIMET [Concomitant]
     Indication: SUPPLEMENTATION THERAPY
  5. DOLOL [Concomitant]
     Indication: PAIN
  6. CENTYL MED KALIUMKLORID [Concomitant]
     Indication: RENAL DISORDER
  7. AMARYL [Concomitant]
     Indication: DRUG USE FOR UNKNOWN INDICATION
  8. FOSAMAX [Concomitant]
     Indication: OSTEOPOROSIS
  9. CALCICHEW D3 [Concomitant]
     Indication: DRUG USE FOR UNKNOWN INDICATION
  10. PERILAX [Concomitant]
     Indication: CONSTIPATION

REACTIONS (3)
  - CONFUSIONAL STATE [None]
  - MALAISE [None]
  - NERVOUSNESS [None]
